FAERS Safety Report 14189170 (Version 13)
Quarter: 2018Q4

REPORT INFORMATION
  Report Type: Report from Study
  Country: GB (occurrence: GB)
  Receive Date: 20171115
  Receipt Date: 20181002
  Transmission Date: 20190204
  Serious: Yes (Death, Other)
  Sender: FDA-Public Use
  Company Number: GB-ROCHE-1612929

PATIENT
  Age: 69 Year
  Sex: Male

DRUGS (4)
  1. ESBRIET [Suspect]
     Active Substance: PIRFENIDONE
     Indication: IDIOPATHIC PULMONARY FIBROSIS
     Dosage: 3 PIRFENIDONE 3 TIMES DAILY
     Route: 048
     Dates: start: 20150617
  2. ESBRIET [Suspect]
     Active Substance: PIRFENIDONE
     Route: 048
  3. ESBRIET [Suspect]
     Active Substance: PIRFENIDONE
     Route: 048
     Dates: start: 20150722
  4. LORAZEPAM. [Concomitant]
     Active Substance: LORAZEPAM
     Dosage: HALF TABLET
     Route: 065

REACTIONS (48)
  - Lung infection [Not Recovered/Not Resolved]
  - Pain in extremity [Unknown]
  - Peripheral swelling [Unknown]
  - Dyspnoea [Unknown]
  - Stress [Unknown]
  - Condition aggravated [Not Recovered/Not Resolved]
  - Malaise [Not Recovered/Not Resolved]
  - Fall [Unknown]
  - Lower respiratory tract infection [Unknown]
  - Diabetes mellitus [Unknown]
  - Defaecation urgency [Unknown]
  - Fatigue [Unknown]
  - Anger [Not Recovered/Not Resolved]
  - Cough [Not Recovered/Not Resolved]
  - Dysphagia [Not Recovered/Not Resolved]
  - Liver function test abnormal [Not Recovered/Not Resolved]
  - Tearfulness [Not Recovered/Not Resolved]
  - Decreased appetite [Unknown]
  - Increased appetite [Unknown]
  - Spinal column stenosis [Unknown]
  - Carbon monoxide diffusing capacity decreased [Unknown]
  - Infection [Not Recovered/Not Resolved]
  - Decubitus ulcer [Unknown]
  - Forced vital capacity decreased [Unknown]
  - Somnolence [Unknown]
  - Total lung capacity decreased [Unknown]
  - Oxygen saturation decreased [Not Recovered/Not Resolved]
  - Vomiting [Unknown]
  - Dyspepsia [Unknown]
  - Pain [Unknown]
  - Frustration tolerance decreased [Not Recovered/Not Resolved]
  - Abdominal pain upper [Not Recovered/Not Resolved]
  - Sciatica [Unknown]
  - Arthralgia [Unknown]
  - Exostosis [Unknown]
  - Nausea [Recovering/Resolving]
  - Anxiety [Unknown]
  - Gastrointestinal disorder [Not Recovered/Not Resolved]
  - Gastrointestinal sounds abnormal [Not Recovered/Not Resolved]
  - Asthenia [Unknown]
  - Death [Fatal]
  - Glaucoma [Unknown]
  - Type 2 diabetes mellitus [Unknown]
  - Tachypnoea [Unknown]
  - Diarrhoea [Recovering/Resolving]
  - Joint swelling [Unknown]
  - Memory impairment [Not Recovered/Not Resolved]
  - Procedural pain [Unknown]

NARRATIVE: CASE EVENT DATE: 20171117
